FAERS Safety Report 8886000 (Version 1)
Quarter: 2012Q4

REPORT INFORMATION
  Report Type: 
  Country: US (occurrence: US)
  Receive Date: 20121105
  Receipt Date: 20121105
  Transmission Date: 20130627
  Serious: No
  Sender: FDA-Public Use
  Company Number: US-PFIZER INC-2012274989

PATIENT
  Sex: Male

DRUGS (2)
  1. LIPITOR [Suspect]
     Dosage: UNK
     Dates: end: 2012
  2. LIPITOR [Suspect]
     Dosage: UNK
     Dates: start: 201203

REACTIONS (3)
  - Urticaria [Unknown]
  - Rash [Unknown]
  - Pruritus [Unknown]
